FAERS Safety Report 12095763 (Version 1)
Quarter: 2016Q1

REPORT INFORMATION
  Report Type: Spontaneous
  Country: US (occurrence: US)
  Receive Date: 20160220
  Receipt Date: 20160220
  Transmission Date: 20160526
  Serious: No
  Sender: FDA-Public Use
  Company Number: PHEH2016US003932

PATIENT
  Sex: Female
  Weight: 73.47 kg

DRUGS (1)
  1. TOBRAMYCIN. [Suspect]
     Active Substance: TOBRAMYCIN
     Indication: PROPHYLAXIS
     Dosage: (OFF MEDICATION FOR 28 DAYS AND RECEIVED FOR 28 DAYS)
     Route: 055

REACTIONS (2)
  - Wrong technique in product usage process [Not Recovered/Not Resolved]
  - Alopecia [Not Recovered/Not Resolved]
